FAERS Safety Report 6535420-2 (Version None)
Quarter: 2010Q1

REPORT INFORMATION
  Report Type: 
  Country: None (occurrence: None)
  Receive Date: 20100113
  Receipt Date: 20100104
  Transmission Date: 20100710
  Serious: No
  Sender: FDA-Public Use
  Company Number: US-BAYER-201010581NA

PATIENT
  Age: 41 Year
  Sex: Female

DRUGS (4)
  1. MAGNEVIST [Suspect]
     Indication: NUCLEAR MAGNETIC RESONANCE IMAGING
     Dosage: TOTAL DAILY DOSE: 20 ML
     Dates: start: 20091228, end: 20091228
  2. HYDROCODEINE [Concomitant]
  3. IBUPROFEN [Concomitant]
  4. SOMA [Concomitant]

REACTIONS (1)
  - RASH ERYTHEMATOUS [None]
